FAERS Safety Report 9696397 (Version 6)
Quarter: 2014Q1

REPORT INFORMATION
  Report Type: Spontaneous
  Country: DE (occurrence: None)
  Receive Date: 20131115
  Receipt Date: 20140310
  Transmission Date: 20141002
  Serious: Yes (Hospitalization)
  Sender: FDA-Public Use
  Company Number: US-2013-12086

PATIENT
  Age: 48 Year
  Sex: Male

DRUGS (4)
  1. OPC-41061 [Suspect]
     Indication: CONGENITAL CYSTIC KIDNEY DISEASE
     Dosage: 60 MG MILLIGRAM(S), DAILY DOSE, ORAL
     Route: 048
     Dates: start: 20110405, end: 20131105
  2. RAMIPRIL (RAMIPRIL) [Concomitant]
  3. METOPROLOL (METOPROLOL TARTRATE) [Concomitant]
  4. ALLOPURINOL [Concomitant]

REACTIONS (10)
  - Transient ischaemic attack [None]
  - Gamma-glutamyltransferase increased [None]
  - Blood urea increased [None]
  - Blood bicarbonate decreased [None]
  - Glomerular filtration rate decreased [None]
  - Blood fibrinogen increased [None]
  - Blood triglycerides increased [None]
  - High density lipoprotein decreased [None]
  - Renal failure chronic [None]
  - Folate deficiency [None]
